FAERS Safety Report 16831198 (Version 1)
Quarter: 2019Q3

REPORT INFORMATION
  Report Type: Spontaneous
  Country: JP (occurrence: JP)
  Receive Date: 20190920
  Receipt Date: 20190920
  Transmission Date: 20191005
  Serious: Yes (Other)
  Sender: FDA-Public Use
  Company Number: JP-TEVA-2019-JP-1106120

PATIENT
  Age: 9 Decade
  Sex: Female

DRUGS (4)
  1. AZILECT [Suspect]
     Active Substance: RASAGILINE MESYLATE
     Indication: PARKINSON^S DISEASE
     Dosage: 1 MILLIGRAM DAILY;
     Route: 048
     Dates: start: 201905, end: 20190904
  2. STALEVO [Concomitant]
     Active Substance: CARBIDOPA\ENTACAPONE\LEVODOPA
  3. ROPINIROLE. [Concomitant]
     Active Substance: ROPINIROLE
  4. EXCEGRAN [Concomitant]
     Active Substance: ZONISAMIDE

REACTIONS (4)
  - Weight decreased [Unknown]
  - Pain [Recovered/Resolved]
  - Performance status decreased [Unknown]
  - Dyskinesia [Unknown]

NARRATIVE: CASE EVENT DATE: 20190807
